FAERS Safety Report 18131647 (Version 2)
Quarter: 2020Q3

REPORT INFORMATION
  Report Type: Spontaneous
  Country: US (occurrence: US)
  Receive Date: 20200810
  Receipt Date: 20200917
  Transmission Date: 20201103
  Serious: No
  Sender: FDA-Public Use
  Company Number: US-EMD SERONO-9177061

PATIENT
  Age: 41 Year
  Sex: Female

DRUGS (5)
  1. MAVENCLAD [Suspect]
     Active Substance: CLADRIBINE
     Indication: MULTIPLE SCLEROSIS
     Dosage: FIRST YEAR FIRST MONTH TREATMENT :TWO TABLETS (EACH OF 10MG) FOR FIVE DAYS.
     Route: 048
     Dates: start: 20190707, end: 20190711
  2. MAVENCLAD [Suspect]
     Active Substance: CLADRIBINE
     Dosage: SECOND YEAR FIRST MONTH TREATMENT: TWO TABLETS (EACH OF 10MG) FOR FIVE DAYS.
     Route: 048
  3. MAVENCLAD [Suspect]
     Active Substance: CLADRIBINE
     Dosage: FIRST YEAR SECOND MONTH TREATMENT
     Route: 048
  4. MAVENCLAD [Suspect]
     Active Substance: CLADRIBINE
     Dosage: SECOND YEAR SECOND MONTH TREATMENT :TWO TABLETS (EACH OF 10MG) FOR FIVE DAYS.
     Route: 048
  5. ZYRTEC [Concomitant]
     Active Substance: CETIRIZINE HYDROCHLORIDE
     Indication: MULTIPLE ALLERGIES

REACTIONS (10)
  - Dizziness [Not Recovered/Not Resolved]
  - Lip swelling [Recovered/Resolved]
  - Feeling hot [Not Recovered/Not Resolved]
  - Anal incontinence [Unknown]
  - Food allergy [Unknown]
  - Vomiting [Recovering/Resolving]
  - Swelling face [Unknown]
  - Diarrhoea [Recovering/Resolving]
  - Fatigue [Unknown]
  - Nausea [Not Recovered/Not Resolved]

NARRATIVE: CASE EVENT DATE: 20200830
